FAERS Safety Report 6987751-X (Version None)
Quarter: 2010Q3

REPORT INFORMATION
  Report Type: 
  Country: None (occurrence: None)
  Receive Date: 20100916
  Receipt Date: 20100907
  Transmission Date: 20110219
  Serious: Yes (Other)
  Sender: FDA-Public Use
  Company Number: US-ASTRAZENECA-2009SE31704

PATIENT
  Age: 46 Year
  Sex: Female
  Weight: 83.9 kg

DRUGS (7)
  1. ARIMIDEX [Suspect]
     Route: 048
  2. SEROQUEL XR [Suspect]
     Indication: BIPOLAR DISORDER
     Route: 048
     Dates: start: 20060101
  3. SEROQUEL XR [Suspect]
     Indication: SCHIZOAFFECTIVE DISORDER
     Route: 048
     Dates: start: 20060101
  4. FENTANYL-75 [Concomitant]
  5. ROXANOL [Concomitant]
  6. GABAPENTIN [Concomitant]
  7. XANAX [Concomitant]

REACTIONS (2)
  - INSOMNIA [None]
  - NEOPLASM MALIGNANT [None]
